FAERS Safety Report 18456080 (Version 2)
Quarter: 2020Q4

REPORT INFORMATION
  Report Type: Report from Study
  Country: US (occurrence: US)
  Receive Date: 20201103
  Receipt Date: 20201109
  Transmission Date: 20210114
  Serious: Yes (Hospitalization)
  Sender: FDA-Public Use
  Company Number: US-B.I. PHARMACEUTICALS,INC./RIDGEFIELD-2020-BI-050517

PATIENT
  Age: 73 Year
  Sex: Female

DRUGS (2)
  1. OFEV [Suspect]
     Active Substance: NINTEDANIB
     Indication: IDIOPATHIC PULMONARY FIBROSIS
     Dosage: 100 MG BY MOUTH TWICE DAILY
     Route: 048
     Dates: start: 20200910
  2. OFEV [Suspect]
     Active Substance: NINTEDANIB
     Route: 048
     Dates: start: 202009, end: 202010

REACTIONS (8)
  - Fatigue [Not Recovered/Not Resolved]
  - Electrocardiogram abnormal [Unknown]
  - Vomiting [Not Recovered/Not Resolved]
  - Heart rate decreased [Unknown]
  - Myalgia [Not Recovered/Not Resolved]
  - Pyrexia [Unknown]
  - Liver function test increased [Unknown]
  - Nausea [Not Recovered/Not Resolved]
